FAERS Safety Report 23333319 (Version 1)
Quarter: 2023Q4

REPORT INFORMATION
  Report Type: Spontaneous
  Country: US (occurrence: None)
  Receive Date: 20231222
  Receipt Date: 20231222
  Transmission Date: 20240110
  Serious: Yes (unspecified)
  Sender: FDA-Public Use
  Company Number: None

PATIENT
  Age: 62 Year
  Sex: Female
  Weight: 112.05 kg

DRUGS (5)
  1. CEFTRIAXONE [Suspect]
     Active Substance: CEFTRIAXONE\CEFTRIAXONE SODIUM
     Indication: Respiratory failure
     Dosage: FREQUENCY : DAILY;?
     Route: 042
     Dates: start: 20231222, end: 20231222
  2. ASPIRIN [Concomitant]
     Active Substance: ASPIRIN
     Dates: start: 20231222, end: 20231222
  3. Budesonide 0.5 mg neb [Concomitant]
     Dates: start: 20231222, end: 20231222
  4. furosemide 40 mg iv [Concomitant]
     Dates: start: 20231222
  5. methylprednisolone 125 mg iv [Concomitant]
     Dates: start: 20231222

REACTIONS (7)
  - Pruritus [None]
  - Infusion related reaction [None]
  - Respiratory failure [None]
  - Feeling abnormal [None]
  - Hyperhidrosis [None]
  - Urinary incontinence [None]
  - Anaphylactic reaction [None]

NARRATIVE: CASE EVENT DATE: 20231222
